FAERS Safety Report 17316497 (Version 1)
Quarter: 2020Q1

REPORT INFORMATION
  Report Type: Spontaneous
  Country: GB (occurrence: GB)
  Receive Date: 20200124
  Receipt Date: 20200124
  Transmission Date: 20200409
  Serious: Yes (Other)
  Sender: FDA-Public Use
  Company Number: GB-MYLANLABS-2020M1007131

PATIENT
  Age: 13 Year
  Sex: Male
  Weight: 39.01 kg

DRUGS (1)
  1. CLARITHROMYCIN. [Suspect]
     Active Substance: CLARITHROMYCIN
     Indication: LOCALISED INFECTION
     Dosage: 500 MILLIGRAM, QD
     Route: 048
     Dates: start: 20191018, end: 20191022

REACTIONS (6)
  - Depressed mood [Unknown]
  - Lethargy [Unknown]
  - Crying [Unknown]
  - Suicidal ideation [Unknown]
  - Depression [Recovering/Resolving]
  - Apathy [Unknown]

NARRATIVE: CASE EVENT DATE: 20191021
